FAERS Safety Report 4802839-7 (Version None)
Quarter: 2005Q3

REPORT INFORMATION
  Report Type: 
  Country: None (occurrence: None)
  Receive Date: 20050823
  Receipt Date: 20050823
  Transmission Date: 20060218
  Serious: Yes (Disabling, Other)
  Sender: FDA-Public Use
  Company Number: None

PATIENT
  Age: 61 Year
  Sex: Male
  Weight: 72.5755 kg

DRUGS (5)
  1. CALTRATE (CARUS) 600 MG BID [Suspect]
     Dosage: SEE IMAGE
     Route: 048
  2. PSYDEPRESSANTS (SEE IMAGE) [Suspect]
     Dosage: CA (CO3) 600 BID
  3. FLOXIN [Concomitant]
  4. KEFLEX [Concomitant]
  5. BACTRIM [Concomitant]

REACTIONS (2)
  - CALCULUS PROSTATIC [None]
  - PROSTATITIS [None]
